FAERS Safety Report 11097540 (Version 1)
Quarter: 2015Q2

REPORT INFORMATION
  Report Type: Spontaneous
  Country: US (occurrence: US)
  Receive Date: 20150507
  Receipt Date: 20150507
  Transmission Date: 20150821
  Serious: No
  Sender: FDA-Public Use
  Company Number: US-TEVA-560778ACC

PATIENT
  Sex: Female

DRUGS (1)
  1. PLAN B ONE-STEP [Suspect]
     Active Substance: LEVONORGESTREL
     Indication: POST COITAL CONTRACEPTION
     Route: 065
     Dates: start: 20150427, end: 20150427

REACTIONS (5)
  - Muscle spasms [Unknown]
  - Vomiting [Recovered/Resolved]
  - Pyrexia [Unknown]
  - Nausea [Unknown]
  - Smoke sensitivity [Unknown]

NARRATIVE: CASE EVENT DATE: 20150430
